FAERS Safety Report 13478669 (Version 1)
Quarter: 2017Q2

REPORT INFORMATION
  Report Type: Not Available
  Country: US (occurrence: US)
  Receive Date: 20170425
  Receipt Date: 20170425
  Transmission Date: 20170830
  Serious: No
  Sender: FDA-Public Use
  Company Number: US-MEDIMETRIKS-2016-US-004404

PATIENT
  Sex: Female

DRUGS (1)
  1. NEO-SYNALAR [Suspect]
     Active Substance: FLUOCINOLONE ACETONIDE\NEOMYCIN SULFATE
     Dosage: 3 TIMES DAILY
     Route: 061
     Dates: start: 20160503

REACTIONS (2)
  - Drug ineffective [Not Recovered/Not Resolved]
  - Delusion [Unknown]
